FAERS Safety Report 12267709 (Version 1)
Quarter: 2016Q2

REPORT INFORMATION
  Report Type: Spontaneous
  Country: US (occurrence: US)
  Receive Date: 20160414
  Receipt Date: 20160414
  Transmission Date: 20160815
  Serious: No
  Sender: FDA-Public Use
  Company Number: US-GALDERMA-US16000926

PATIENT
  Age: 45 Year
  Sex: Female

DRUGS (11)
  1. PONDS COLD CREAM [Concomitant]
     Indication: THERAPEUTIC SKIN CARE TOPICAL
     Route: 061
  2. OLAY COMPLETE SENSITIVE FORMULA MOISTURIZER SPF 15 [Concomitant]
     Route: 061
  3. FLUOXETINE HCL [Concomitant]
     Active Substance: FLUOXETINE HYDROCHLORIDE
     Dosage: 20 MG
     Route: 048
  4. SOOLANTRA [Suspect]
     Active Substance: IVERMECTIN
     Indication: ROSACEA
     Dosage: 1%
     Route: 061
     Dates: start: 20160211, end: 20160211
  5. IBUPROFEN. [Concomitant]
     Active Substance: IBUPROFEN
     Dosage: 800 MG
     Route: 048
  6. PROBIOTIC [Concomitant]
     Active Substance: PROBIOTICS NOS
     Indication: SUPPLEMENTATION THERAPY
     Dosage: 20 BILLION CFU
     Route: 048
  7. SOOLANTRA [Suspect]
     Active Substance: IVERMECTIN
     Dosage: 1%
     Route: 061
     Dates: start: 20160202, end: 20160210
  8. CLEARASIL SENSITIVE SKIN CREAM WASH [Concomitant]
     Indication: THERAPEUTIC SKIN CARE TOPICAL
     Route: 061
  9. NEUTROGENA LIQUID [Concomitant]
     Indication: THERAPEUTIC SKIN CARE TOPICAL
     Route: 061
  10. DEXTROAMP AMPHET ER [Concomitant]
     Dosage: 30 MG
     Route: 048
  11. BUPROPION. [Concomitant]
     Active Substance: BUPROPION
     Route: 048

REACTIONS (4)
  - Erythema [Recovered/Resolved]
  - Skin burning sensation [Recovered/Resolved]
  - Pain of skin [Recovered/Resolved]
  - Rash macular [Recovered/Resolved]

NARRATIVE: CASE EVENT DATE: 20160211
